FAERS Safety Report 9977926 (Version 1)
Quarter: 2014Q1

REPORT INFORMATION
  Report Type: Report from Study
  Country: US (occurrence: US)
  Receive Date: 20140306
  Receipt Date: 20140306
  Transmission Date: 20141002
  Serious: No
  Sender: FDA-Public Use
  Company Number: US-ABBVIE-13P-163-1161968-00

PATIENT
  Age: 62 Year
  Sex: Male

DRUGS (6)
  1. HUMIRA [Suspect]
     Dates: start: 20130920
  2. HUMIRA [Suspect]
     Dates: start: 20131004
  3. HUMIRA [Suspect]
     Dates: start: 20131018
  4. LIALDA [Concomitant]
     Indication: COLITIS ULCERATIVE
  5. FENASTERIDE [Concomitant]
     Indication: BENIGN PROSTATIC HYPERPLASIA
  6. ALLEGRA [Concomitant]
     Indication: HYPERSENSITIVITY

REACTIONS (1)
  - Drug administration error [Unknown]
